FAERS Safety Report 15695507 (Version 2)
Quarter: 2018Q4

REPORT INFORMATION
  Report Type: Spontaneous
  Country: CN (occurrence: CN)
  Receive Date: 20181206
  Receipt Date: 20181211
  Transmission Date: 20190205
  Serious: Yes (Other)
  Sender: FDA-Public Use
  Company Number: CN-PFIZER INC-2018493029

PATIENT
  Age: 68 Year
  Sex: Male
  Weight: 67 kg

DRUGS (6)
  1. CLOPIDOGREL [Concomitant]
     Active Substance: CLOPIDOGREL BISULFATE
     Dosage: UNK
  2. ATORVASTATIN CALCIUM. [Suspect]
     Active Substance: ATORVASTATIN CALCIUM
     Indication: LIPIDS
     Dosage: 20 MG, 1X/DAY
     Route: 048
     Dates: start: 20181017, end: 20181022
  3. ASPIRIN [ACETYLSALICYLIC ACID] [Concomitant]
     Active Substance: ASPIRIN
     Dosage: UNK
  4. GLUCOSE INJECTION [Concomitant]
     Active Substance: DEXTROSE
     Dosage: UNK
  5. CORDARONE [Interacting]
     Active Substance: AMIODARONE HYDROCHLORIDE
     Indication: ARRHYTHMIA
     Dosage: 0.2 G, 3X/DAY
     Route: 048
     Dates: start: 20181017, end: 20181022
  6. AMIODARONE HYDROCHLORIDE. [Interacting]
     Active Substance: AMIODARONE HYDROCHLORIDE
     Indication: ARRHYTHMIA
     Dosage: 0.6 G, 1X/DAY
     Route: 041
     Dates: start: 20181017, end: 20181017

REACTIONS (2)
  - Liver injury [Recovering/Resolving]
  - Drug interaction [Unknown]

NARRATIVE: CASE EVENT DATE: 201810
